FAERS Safety Report 25134541 (Version 1)
Quarter: 2025Q1

REPORT INFORMATION
  Report Type: Spontaneous
  Country: US (occurrence: US)
  Receive Date: 20250328
  Receipt Date: 20250328
  Transmission Date: 20250409
  Serious: No
  Sender: Haleon PLC
  Company Number: US-HALEON-2235355

PATIENT

DRUGS (1)
  1. NICORETTE FRUIT CHILL [Suspect]
     Active Substance: NICOTINE
     Indication: Nicotine dependence
     Dates: start: 20250325, end: 20250326

REACTIONS (6)
  - Condition aggravated [Not Recovered/Not Resolved]
  - Prescription drug used without a prescription [Unknown]
  - Dizziness [Not Recovered/Not Resolved]
  - Malaise [Not Recovered/Not Resolved]
  - Nausea [Not Recovered/Not Resolved]
  - Asthenia [Not Recovered/Not Resolved]

NARRATIVE: CASE EVENT DATE: 20250325
